FAERS Safety Report 6057028-8 (Version None)
Quarter: 2009Q1

REPORT INFORMATION
  Report Type: 
  Country: None (occurrence: None)
  Receive Date: 20090129
  Receipt Date: 20090122
  Transmission Date: 20090719
  Serious: Yes (Hospitalization, Other)
  Sender: FDA-Public Use
  Company Number: FR-AMGEN-US329120

PATIENT
  Age: 73 Year
  Sex: Female

DRUGS (1)
  1. ENBREL [Suspect]
     Indication: DRUG USE FOR UNKNOWN INDICATION
     Dosage: UNKNOWN
     Route: 058
     Dates: end: 20080101

REACTIONS (4)
  - BRONCHIAL HYPERREACTIVITY [None]
  - RESPIRATORY DISTRESS [None]
  - SLEEP APNOEA SYNDROME [None]
  - VOCAL CORD PARALYSIS [None]
